FAERS Safety Report 25583814 (Version 1)
Quarter: 2025Q3

REPORT INFORMATION
  Report Type: Report from Study
  Country: CA (occurrence: CA)
  Receive Date: 20250721
  Receipt Date: 20250721
  Transmission Date: 20251021
  Serious: Yes (Other)
  Sender: TAKEDA
  Company Number: CA-TAKEDA-2025TUS064086

PATIENT
  Age: 62 Year
  Sex: Male

DRUGS (13)
  1. VEDOLIZUMAB [Suspect]
     Active Substance: VEDOLIZUMAB
     Indication: Colitis ulcerative
  2. PREDNISONE [Concomitant]
     Active Substance: PREDNISONE
  3. HYDROCHLOROTHIAZIDE [Concomitant]
     Active Substance: HYDROCHLOROTHIAZIDE
  4. Salofalk [Concomitant]
  5. MESALAMINE [Concomitant]
     Active Substance: MESALAMINE
  6. PANTOPRAZOLE [Concomitant]
     Active Substance: PANTOPRAZOLE
  7. MOMETASONE [Concomitant]
     Active Substance: MOMETASONE
  8. HYDROMORPHONE [Concomitant]
     Active Substance: HYDROMORPHONE
  9. M cal [Concomitant]
  10. NAPROXEN [Concomitant]
     Active Substance: NAPROXEN
  11. DOXYCYCLINE [Concomitant]
     Active Substance: DOXYCYCLINE
  12. DOXAZOSIN [Concomitant]
     Active Substance: DOXAZOSIN MESYLATE
  13. NAPROSYN [Concomitant]
     Active Substance: NAPROXEN

REACTIONS (1)
  - Nephrolithiasis [Not Recovered/Not Resolved]

NARRATIVE: CASE EVENT DATE: 20250701
